FAERS Safety Report 25293107 (Version 7)
Quarter: 2025Q3

REPORT INFORMATION
  Report Type: Spontaneous
  Country: US (occurrence: US)
  Receive Date: 20250510
  Receipt Date: 20250802
  Transmission Date: 20251020
  Serious: Yes (Other)
  Sender: SANOFI AVENTIS
  Company Number: US-SA-2025SA126571

PATIENT
  Age: 19 Year
  Sex: Female
  Weight: 72.109 kg

DRUGS (4)
  1. NEXVIAZYME [Suspect]
     Active Substance: AVALGLUCOSIDASE ALFA-NGPT
     Indication: Glycogen storage disease type II
     Route: 065
     Dates: start: 20210921
  2. NEXVIAZYME [Suspect]
     Active Substance: AVALGLUCOSIDASE ALFA-NGPT
     Dosage: 140 ML, Q3W
     Route: 042
     Dates: start: 2025
  3. APAP [Concomitant]
     Active Substance: ACETAMINOPHEN
     Indication: Premedication
  4. METHYLPREDNISOLONE [Concomitant]
     Active Substance: METHYLPREDNISOLONE
     Indication: Premedication

REACTIONS (5)
  - Urticaria [Recovering/Resolving]
  - Pruritus [Recovering/Resolving]
  - Drug specific antibody present [Recovering/Resolving]
  - Neutralising antibodies positive [Recovered/Resolved]
  - Off label use [Unknown]

NARRATIVE: CASE EVENT DATE: 20230830
